FAERS Safety Report 12770503 (Version 1)
Quarter: 2016Q3

REPORT INFORMATION
  Report Type: Spontaneous
  Country: PT (occurrence: PT)
  Receive Date: 20160922
  Receipt Date: 20160922
  Transmission Date: 20161109
  Serious: Yes (Other)
  Sender: FDA-Public Use
  Company Number: PHHY2016PT127379

PATIENT
  Age: 41 Year
  Sex: Female

DRUGS (1)
  1. TEGRETOL [Suspect]
     Active Substance: CARBAMAZEPINE
     Indication: MIGRAINE PROPHYLAXIS
     Route: 048
     Dates: start: 20160805, end: 20160903

REACTIONS (6)
  - Pruritus generalised [Unknown]
  - Dyspnoea [Unknown]
  - Urticaria [Unknown]
  - Pruritus [Unknown]
  - Erythema [Unknown]
  - Generalised erythema [Unknown]

NARRATIVE: CASE EVENT DATE: 20160902
